FAERS Safety Report 10713445 (Version 2)
Quarter: 2015Q2

REPORT INFORMATION
  Report Type: Spontaneous
  Country: CZ (occurrence: CZ)
  Receive Date: 20150115
  Receipt Date: 20150528
  Transmission Date: 20150821
  Serious: Yes (Life-Threatening, Hospitalization)
  Sender: FDA-Public Use
  Company Number: CZ-TEVA-534268ISR

PATIENT
  Sex: Female

DRUGS (4)
  1. TYSABRI [Suspect]
     Active Substance: NATALIZUMAB
     Dosage: 10 MILLIGRAM DAILY;
     Route: 042
     Dates: start: 201209, end: 20130903
  2. COPAXONE [Suspect]
     Active Substance: GLATIRAMER ACETATE
     Dosage: 20 MILLIGRAM DAILY;
     Route: 058
     Dates: start: 201310
  3. MEDROL [Concomitant]
     Active Substance: METHYLPREDNISOLONE
  4. COPAXONE [Suspect]
     Active Substance: GLATIRAMER ACETATE
     Dosage: 20 MILLIGRAM DAILY;
     Route: 058
     Dates: start: 201206, end: 201209

REACTIONS (2)
  - Drug intolerance [Not Recovered/Not Resolved]
  - Progressive multifocal leukoencephalopathy [Not Recovered/Not Resolved]
